FAERS Safety Report 9506748 (Version 2)
Quarter: 2013Q4

REPORT INFORMATION
  Report Type: Spontaneous
  Country: US (occurrence: US)
  Receive Date: 20130909
  Receipt Date: 20131014
  Transmission Date: 20140711
  Serious: Yes (Other)
  Sender: FDA-Public Use
  Company Number: US-AMGEN-USASP2013062162

PATIENT
  Age: 78 Year
  Sex: Female

DRUGS (1)
  1. ENBREL [Suspect]
     Indication: RHEUMATOID ARTHRITIS
     Dosage: 50 MG, QWK
     Route: 065
     Dates: start: 20130501

REACTIONS (10)
  - Loss of consciousness [Recovered/Resolved]
  - Fall [Recovered/Resolved]
  - Neck injury [Recovered/Resolved]
  - Laceration [Recovered/Resolved]
  - Pain in extremity [Not Recovered/Not Resolved]
  - Local swelling [Not Recovered/Not Resolved]
  - Feeling hot [Recovered/Resolved]
  - Musculoskeletal pain [Not Recovered/Not Resolved]
  - Wound infection [Recovered/Resolved]
  - Injection site pain [Not Recovered/Not Resolved]
